FAERS Safety Report 6381134-1 (Version None)
Quarter: 2009Q3

REPORT INFORMATION
  Report Type: 
  Country: None (occurrence: None)
  Receive Date: 20090924
  Receipt Date: 20090915
  Transmission Date: 20100115
  Serious: Yes (Death, Hospitalization)
  Sender: FDA-Public Use
  Company Number: 382662

PATIENT
  Age: 76 Year
  Sex: Female

DRUGS (5)
  1. METHOTREXATE [Suspect]
     Indication: RHEUMATOID ARTHRITIS
     Dosage: 20 MG, UNKNOWN, SUBCUTANEOUS
     Route: 058
  2. LANSOPRAZOLE [Suspect]
  3. RITUXIMAB [Suspect]
     Indication: RHEUMATOID ARTHRITIS
     Dosage: 1 G, UNKNOWN, INTRAVENOUS
     Route: 042
     Dates: start: 20080404, end: 20090205
  4. ASPIRIN [Concomitant]
  5. FUROSEMIDE /00032601/ [Concomitant]

REACTIONS (13)
  - ASPARTATE AMINOTRANSFERASE INCREASED [None]
  - BLOOD ALKALINE PHOSPHATASE INCREASED [None]
  - C-REACTIVE PROTEIN INCREASED [None]
  - DEHYDRATION [None]
  - ESCHERICHIA URINARY TRACT INFECTION [None]
  - FEMORAL NECK FRACTURE [None]
  - HAEMOGLOBIN DECREASED [None]
  - IMMOBILE [None]
  - INFECTION [None]
  - NEUTROPENIA [None]
  - PLATELET COUNT DECREASED [None]
  - SEPSIS [None]
  - SURGERY [None]
